FAERS Safety Report 14390114 (Version 5)
Quarter: 2019Q1

REPORT INFORMATION
  Report Type: Report from Study
  Country: None (occurrence: FR)
  Receive Date: 20180115
  Receipt Date: 20190212
  Transmission Date: 20190417
  Serious: Yes (Hospitalization, Other)
  Sender: FDA-Public Use
  Company Number: FR-ABBVIE-18K-056-2222304-00

PATIENT
  Sex: Female
  Weight: 52 kg

DRUGS (7)
  1. DUODOPA [Suspect]
     Active Substance: CARBIDOPA\LEVODOPA
     Dosage: MD: 2.5 ML CFR DURING THE DAY: 2. 5ML/H ED: 2.5 ML
     Route: 050
  2. MANTADIX [Concomitant]
     Active Substance: AMANTADINE HYDROCHLORIDE
     Indication: PRODUCT USED FOR UNKNOWN INDICATION
     Dosage: 2 TABLET ON NOON AND EVENING
  3. DUODOPA [Suspect]
     Active Substance: CARBIDOPA\LEVODOPA
     Indication: PARKINSON^S DISEASE
     Dosage: MD : 12 ML, ED : 2.5 ML, FLOW RATE DURING DAY: 2.4 ML/H ,DAY RHYTHM : 7 OR 8AM TO 11PM,
     Route: 050
     Dates: start: 20160623
  4. SINEMET [Concomitant]
     Active Substance: CARBIDOPA\LEVODOPA
     Indication: PRODUCT USED FOR UNKNOWN INDICATION
     Dosage: AT 11:00PM
  5. DUODOPA [Suspect]
     Active Substance: CARBIDOPA\LEVODOPA
     Dosage: CONTINUOUS FLOW RATE (DURING THE DAY): 2.6 ML/H
     Route: 050
     Dates: start: 201607
  6. DUODOPA [Suspect]
     Active Substance: CARBIDOPA\LEVODOPA
     Dosage: CONTINUOUS FLOW RATE (DURING THE DAY): 2.4 ML/H
     Route: 050
  7. REQUIP [Concomitant]
     Active Substance: ROPINIROLE HYDROCHLORIDE
     Indication: PRODUCT USED FOR UNKNOWN INDICATION
     Dosage: 1 TABLET ON MORNING

REACTIONS (13)
  - Loss of consciousness [Unknown]
  - Facial bones fracture [Unknown]
  - Dyskinesia [Recovered/Resolved]
  - Procedural complication [Unknown]
  - Device damage [Not Recovered/Not Resolved]
  - Fall [Not Recovered/Not Resolved]
  - Emotional distress [Unknown]
  - Freezing phenomenon [Not Recovered/Not Resolved]
  - Rib fracture [Unknown]
  - Device dislocation [Unknown]
  - Crying [Not Recovered/Not Resolved]
  - Fall [Unknown]
  - Syncope [Unknown]

NARRATIVE: CASE EVENT DATE: 20171215
